FAERS Safety Report 4449360-6 (Version None)
Quarter: 2004Q3

REPORT INFORMATION
  Report Type: 
  Country: None (occurrence: None)
  Receive Date: 20040913
  Receipt Date: 20040810
  Transmission Date: 20050211
  Serious: Yes (Other)
  Sender: FDA-Public Use
  Company Number: 04-08-1275

PATIENT
  Age: 54 Year
  Sex: Female

DRUGS (2)
  1. CLOZAPINE [Suspect]
     Dosage: 50-400MG QD ORAL
     Route: 048
     Dates: start: 20020601
  2. CHEMOTHERAPY [Concomitant]

REACTIONS (1)
  - AGRANULOCYTOSIS [None]
